FAERS Safety Report 5476415-X (Version None)
Quarter: 2007Q4

REPORT INFORMATION
  Report Type: 
  Country: None (occurrence: None)
  Receive Date: 20071003
  Receipt Date: 20070928
  Transmission Date: 20080405
  Serious: Yes (Hospitalization, Other)
  Sender: FDA-Public Use
  Company Number: US-MERCK-0606USA05716

PATIENT
  Age: 55 Year
  Sex: Female
  Weight: 71 kg

DRUGS (4)
  1. FOSAMAX [Suspect]
     Indication: OSTEOPOROSIS
     Route: 048
     Dates: end: 20020301
  2. FOSAMAX [Suspect]
     Route: 048
     Dates: start: 20000425, end: 20010129
  3. ZOMETA [Suspect]
     Route: 065
  4. AREDIA [Suspect]
     Route: 065

REACTIONS (23)
  - ANGINA UNSTABLE [None]
  - BLADDER DISORDER [None]
  - CHEST DISCOMFORT [None]
  - CHEST PAIN [None]
  - COUGH [None]
  - DIZZINESS [None]
  - DYSPNOEA [None]
  - EPISTAXIS [None]
  - FALL [None]
  - GASTROOESOPHAGEAL REFLUX DISEASE [None]
  - LUNG DISORDER [None]
  - MALAISE [None]
  - MULTIPLE MYELOMA [None]
  - MUSCULOSKELETAL CHEST PAIN [None]
  - MYOCARDIAL ISCHAEMIA [None]
  - OSTEOMYELITIS [None]
  - OSTEONECROSIS [None]
  - PAIN IN EXTREMITY [None]
  - PARANASAL SINUS HYPERSECRETION [None]
  - SINUSITIS [None]
  - SPUTUM DISCOLOURED [None]
  - UPPER RESPIRATORY TRACT INFECTION [None]
  - WEIGHT DECREASED [None]
